FAERS Safety Report 6190969-X (Version None)
Quarter: 2009Q2

REPORT INFORMATION
  Report Type: 
  Country: None (occurrence: None)
  Receive Date: 20090514
  Receipt Date: 20090506
  Transmission Date: 20091009
  Serious: Yes (Hospitalization)
  Sender: FDA-Public Use
  Company Number: US-NOVOPROD-286967

PATIENT
  Sex: Female
  Weight: 94.331 kg

DRUGS (3)
  1. NOVOLOG [Suspect]
     Indication: INSULIN-REQUIRING TYPE 2 DIABETES MELLITUS
     Dosage: 15 IU, TID WITH SLIDING SCALE
     Route: 058
     Dates: start: 20040101, end: 20090101
  2. NOVOLOG [Suspect]
     Dosage: 26 IU, TID WITH SLIDING SCALE
     Route: 058
     Dates: start: 20090129
  3. LANTUS [Suspect]
     Indication: INSULIN-REQUIRING TYPE 2 DIABETES MELLITUS
     Dosage: 30 IU, QD
     Route: 058
     Dates: start: 20040101

REACTIONS (2)
  - ABDOMINAL HERNIA [None]
  - BLOOD GLUCOSE INCREASED [None]
